FAERS Safety Report 20232717 (Version 1)
Quarter: 2021Q4

REPORT INFORMATION
  Report Type: Spontaneous
  Country: US (occurrence: None)
  Receive Date: 20211223
  Receipt Date: 20211223
  Transmission Date: 20220303
  Serious: No
  Sender: FDA-Public Use
  Company Number: None

PATIENT
  Age: 62 Year
  Sex: Female

DRUGS (2)
  1. CAPECITABINE [Suspect]
     Active Substance: CAPECITABINE
     Indication: Oestrogen replacement therapy
     Dosage: OTHER QUANTITY : 2500;?FREQUENCY : TWICE A DAY;?
     Route: 048
     Dates: start: 20210118, end: 20211112
  2. CAPECITABINE [Suspect]
     Active Substance: CAPECITABINE
     Indication: Uterine cancer

REACTIONS (3)
  - Fatigue [None]
  - Diarrhoea [None]
  - Unevaluable event [None]

NARRATIVE: CASE EVENT DATE: 20210201
